FAERS Safety Report 7636443-2 (Version None)
Quarter: 2011Q3

REPORT INFORMATION
  Report Type: 
  Country: None (occurrence: None)
  Receive Date: 20110726
  Receipt Date: 20110713
  Transmission Date: 20111222
  Serious: Yes (Other)
  Sender: FDA-Public Use
  Company Number: US-CELGENEUS-163-21880-11063305

PATIENT
  Sex: Male
  Weight: 90.8 kg

DRUGS (8)
  1. LASIX [Concomitant]
     Dosage: 40 MILLIGRAM
     Route: 065
  2. ATENOLOL [Concomitant]
     Dosage: 50 MILLIGRAM
     Route: 065
  3. VALACYCLOVIR [Concomitant]
     Dosage: 500 MILLIGRAM
     Route: 065
  4. LISINOPRIL [Concomitant]
     Dosage: 10 MILLIGRAM
     Route: 065
  5. AMBIEN [Concomitant]
     Indication: SLEEP DISORDER
     Route: 065
  6. REVLIMID [Suspect]
     Dosage: 10 MILLIGRAM
     Route: 048
     Dates: start: 20110519, end: 20110613
  7. LIPITOR [Concomitant]
     Dosage: 20 MILLIGRAM
     Route: 065
  8. INSULIN [Concomitant]
     Route: 065

REACTIONS (11)
  - DECREASED APPETITE [None]
  - BOWEL MOVEMENT IRREGULARITY [None]
  - HYPERSOMNIA [None]
  - CONSTIPATION [None]
  - CARDIAC FAILURE [None]
  - DYSPNOEA [None]
  - PAIN IN EXTREMITY [None]
  - BLOOD GLUCOSE INCREASED [None]
  - WEIGHT INCREASED [None]
  - FATIGUE [None]
  - INFLUENZA LIKE ILLNESS [None]
